FAERS Safety Report 6447827-2 (Version None)
Quarter: 2009Q4

REPORT INFORMATION
  Report Type: 
  Country: None (occurrence: None)
  Receive Date: 20091120
  Receipt Date: 20090923
  Transmission Date: 20100525
  Serious: No
  Sender: FDA-Public Use
  Company Number: A0809406A

PATIENT
  Sex: Male

DRUGS (1)
  1. VERAMYST [Suspect]

REACTIONS (2)
  - SKIN DISCOLOURATION [None]
  - SKIN HYPERPIGMENTATION [None]
